FAERS Safety Report 7544156-0 (Version None)
Quarter: 2011Q2

REPORT INFORMATION
  Report Type: 
  Country: None (occurrence: None)
  Receive Date: 20110613
  Receipt Date: 20060321
  Transmission Date: 20111010
  Serious: Yes (Hospitalization)
  Sender: FDA-Public Use
  Company Number: PHMT2006CA00907

PATIENT
  Sex: Male

DRUGS (13)
  1. MAGNESIUM SULFATE [Concomitant]
  2. ALTACE [Concomitant]
  3. APO-LOPERAMIDE [Concomitant]
  4. ATIVAN [Concomitant]
  5. AREDIA [Concomitant]
  6. NOVO-GESIC [Concomitant]
  7. BISOPROLOL FUMARATE [Concomitant]
  8. LIPITOR [Concomitant]
  9. NOVOSPIROTON [Concomitant]
  10. NORVASC [Concomitant]
  11. NOVOSEMIDE [Concomitant]
  12. ASAPHEN [Concomitant]
  13. SANDOSTATIN LAR [Suspect]
     Indication: CARCINOID TUMOUR
     Dosage: 20 MG EVERY 4 WEEKS
     Dates: start: 20051222, end: 20060220

REACTIONS (4)
  - NEOPLASM MALIGNANT [None]
  - HYPERCALCAEMIA [None]
  - ASTHENIA [None]
  - GENERAL PHYSICAL CONDITION ABNORMAL [None]
